FAERS Safety Report 20675794 (Version 1)
Quarter: 2022Q2

REPORT INFORMATION
  Report Type: Spontaneous
  Country: US (occurrence: US)
  Receive Date: 20220405
  Receipt Date: 20220405
  Transmission Date: 20220721
  Serious: No
  Sender: FDA-Public Use
  Company Number: US-SA-SAC20220330001409

PATIENT
  Age: 8 Year
  Sex: Male

DRUGS (1)
  1. DUPIXENT [Suspect]
     Active Substance: DUPILUMAB
     Indication: Eczema infantile
     Dosage: UNK UNK, QOW; 1 SYRINGE EVERY 14 DAYS
     Route: 058

REACTIONS (4)
  - Mood swings [Not Recovered/Not Resolved]
  - Pruritus [Unknown]
  - Irritability [Unknown]
  - Product use in unapproved indication [Unknown]
